FAERS Safety Report 20547791 (Version 1)
Quarter: 2022Q1

REPORT INFORMATION
  Report Type: Spontaneous
  Country: US (occurrence: None)
  Receive Date: 20220303
  Receipt Date: 20220303
  Transmission Date: 20220424
  Serious: Yes (Other)
  Sender: FDA-Public Use
  Company Number: None

PATIENT
  Age: 57 Year
  Sex: Male
  Weight: 77.85 kg

DRUGS (9)
  1. XYREM [Suspect]
     Active Substance: SODIUM OXYBATE
     Indication: Narcolepsy
  2. ASPIRIN [Concomitant]
     Active Substance: ASPIRIN
  3. FIBERCON [Concomitant]
     Active Substance: CALCIUM POLYCARBOPHIL
  4. CLOBETASOL [Concomitant]
     Active Substance: CLOBETASOL
  5. HYDROCORTISONE [Concomitant]
     Active Substance: HYDROCORTISONE
  6. LANTUS SOLOSTAR [Concomitant]
     Active Substance: INSULIN GLARGINE
  7. LISINOPRIL [Concomitant]
     Active Substance: LISINOPRIL
  8. SIMVASTATIN [Concomitant]
     Active Substance: SIMVASTATIN
  9. VIIBRYD [Concomitant]
     Active Substance: VILAZODONE HYDROCHLORIDE

REACTIONS (5)
  - Fall [None]
  - Skin abrasion [None]
  - Confusional state [None]
  - Pallor [None]
  - Memory impairment [None]

NARRATIVE: CASE EVENT DATE: 20211129
